FAERS Safety Report 19122947 (Version 2)
Quarter: 2021Q2

REPORT INFORMATION
  Report Type: Report from Study
  Country: TR (occurrence: TR)
  Receive Date: 20210412
  Receipt Date: 20210423
  Transmission Date: 20210717
  Serious: Yes (Hospitalization, Other)
  Sender: FDA-Public Use
  Company Number: TR-PFIZER INC-2021372082

PATIENT
  Age: 44 Year
  Sex: Male

DRUGS (1)
  1. RAMIPRIL. [Suspect]
     Active Substance: RAMIPRIL
     Indication: HYPERTENSION
     Dosage: UNK

REACTIONS (8)
  - COVID-19 [Unknown]
  - Condition aggravated [Unknown]
  - C-reactive protein increased [Unknown]
  - Cough [Unknown]
  - Respiratory distress [Unknown]
  - Lymphopenia [Unknown]
  - Dyspnoea [Unknown]
  - Pyrexia [Unknown]
